FAERS Safety Report 10403084 (Version 2)
Quarter: 2014Q3

REPORT INFORMATION
  Report Type: Spontaneous
  Country: US (occurrence: US)
  Receive Date: 20140822
  Receipt Date: 20140822
  Transmission Date: 20150326
  Serious: Yes (Hospitalization)
  Sender: FDA-Public Use
  Company Number: US-GLAXOSMITHKLINE-A0693030A

PATIENT
  Sex: Male
  Weight: 113.6 kg

DRUGS (9)
  1. POTASSIUM [Concomitant]
     Active Substance: POTASSIUM
  2. METFORMIN [Concomitant]
     Active Substance: METFORMIN HYDROCHLORIDE
     Dates: start: 200501, end: 200506
  3. FELODIPINE. [Concomitant]
     Active Substance: FELODIPINE
  4. AVANDIA [Suspect]
     Active Substance: ROSIGLITAZONE MALEATE
     Indication: TYPE 2 DIABETES MELLITUS
     Dosage: 4MG TWICE PER DAY
     Route: 048
     Dates: start: 200412, end: 200706
  5. NIFEDIPINE. [Concomitant]
     Active Substance: NIFEDIPINE
  6. INSULIN [Concomitant]
     Active Substance: INSULIN NOS
     Dates: start: 200412
  7. ASPIRIN. [Concomitant]
     Active Substance: ASPIRIN
  8. DIABETA [Concomitant]
     Active Substance: GLYBURIDE
     Dates: start: 200412
  9. LISINOPRIL. [Concomitant]
     Active Substance: LISINOPRIL

REACTIONS (5)
  - Pain [Unknown]
  - Injury [Unknown]
  - Pericardial effusion [Unknown]
  - Pulmonary oedema [Unknown]
  - Cardiac failure congestive [Not Recovered/Not Resolved]
